FAERS Safety Report 5549521-9 (Version None)
Quarter: 2007Q4

REPORT INFORMATION
  Report Type: 
  Country: None (occurrence: None)
  Receive Date: 20071212
  Receipt Date: 20071204
  Transmission Date: 20080405
  Serious: Yes (Hospitalization)
  Sender: FDA-Public Use
  Company Number: PHBS2006GB18958

PATIENT
  Age: 52 Year
  Sex: Male

DRUGS (6)
  1. COMTESS [Suspect]
     Indication: PARKINSON'S DISEASE
     Dosage: 1 DF, 5QD
     Route: 048
     Dates: start: 20050901
  2. COMTESS [Suspect]
     Dosage: 1 DF, 5QD
     Route: 048
     Dates: start: 20061122
  3. CO-CARELDOPA [Concomitant]
     Dosage: 125 MG/DAY
     Dates: start: 20040701
  4. CO-CARELDOPA [Concomitant]
     Dosage: 500 MG/DAY
     Dates: start: 20060801
  5. TEGRETOL-XR [Concomitant]
     Dosage: 200 MG/DAY
     Dates: start: 20051101
  6. OXYBUTYNIN CHLORIDE [Concomitant]
     Dosage: 10 MG/DAY
     Route: 048
     Dates: start: 20050801

REACTIONS (2)
  - GENERAL PHYSICAL HEALTH DETERIORATION [None]
  - PNEUMONIA [None]
